FAERS Safety Report 5161971-1 (Version None)
Quarter: 2006Q4

REPORT INFORMATION
  Report Type: 
  Country: None (occurrence: None)
  Receive Date: 20061130
  Receipt Date: 20061113
  Transmission Date: 20070319
  Serious: Yes (Hospitalization)
  Sender: FDA-Public Use
  Company Number: DE-BRISTOL-MYERS SQUIBB COMPANY-13585799

PATIENT
  Age: 72 Year
  Sex: Male

DRUGS (4)
  1. CETUXIMAB [Suspect]
     Indication: COLON CANCER METASTATIC
     Route: 041
     Dates: start: 20060927, end: 20060927
  2. FENISTIL [Concomitant]
     Route: 041
     Dates: start: 20060927, end: 20061011
  3. RANITIDINE [Concomitant]
     Route: 041
     Dates: start: 20060927, end: 20061011
  4. ZOFRAN [Concomitant]
     Route: 041
     Dates: start: 20060927, end: 20061011

REACTIONS (2)
  - CYTOKINE RELEASE SYNDROME [None]
  - FEBRILE INFECTION [None]
